FAERS Safety Report 6638781-9 (Version None)
Quarter: 2010Q1

REPORT INFORMATION
  Report Type: 
  Country: None (occurrence: None)
  Receive Date: 20100317
  Receipt Date: 20100305
  Transmission Date: 20100710
  Serious: Yes (Hospitalization)
  Sender: FDA-Public Use
  Company Number: FR-PFIZER INC-2009185622

PATIENT
  Age: 54 Year
  Sex: Male
  Weight: 72 kg

DRUGS (10)
  1. MARAVIROC [Suspect]
     Indication: HIV INFECTION
     Dosage: UNK
     Dates: start: 20051123, end: 20060510
  2. RALTEGRAVIR [Concomitant]
     Route: 048
     Dates: start: 20080319
  3. ABACAVIR/LAMIVUDINE [Concomitant]
     Route: 048
     Dates: start: 20051123
  4. TENOFOVIR DISOPROXIL FUMARATE [Concomitant]
     Route: 048
     Dates: start: 20040107
  5. DARUNAVIR [Concomitant]
     Route: 048
     Dates: start: 20060510
  6. RITONAVIR [Concomitant]
     Route: 048
     Dates: start: 20060510
  7. GEMFIBROZIL [Concomitant]
     Route: 048
  8. FISH OIL [Concomitant]
     Route: 048
  9. TRANDOLAPRIL/VERAPAMIL HYDROCHLORIDE [Concomitant]
     Route: 048
  10. ETRAVIRINE [Concomitant]
     Route: 048
     Dates: start: 20080319

REACTIONS (1)
  - ACUTE CORONARY SYNDROME [None]
